FAERS Safety Report 4815864-7 (Version None)
Quarter: 2005Q4

REPORT INFORMATION
  Report Type: 
  Country: None (occurrence: None)
  Receive Date: 20051025
  Receipt Date: 20051013
  Transmission Date: 20060501
  Serious: Yes (Other)
  Sender: FDA-Public Use
  Company Number: 2005142582

PATIENT
  Age: 9 Year
  Sex: Female
  Weight: 25.855 kg

DRUGS (5)
  1. ZYVOX [Suspect]
     Indication: UPPER RESPIRATORY TRACT INFECTION
     Dosage: 400 MG (200 MG, BID INTERVAL: DAILY), INTRAVENOUS
     Route: 042
     Dates: start: 20051010, end: 20051011
  2. TOBRAMYCIN [Concomitant]
  3. ZOSYN [Concomitant]
  4. CLINDAMYCIN (CLINDAMYCIN) [Concomitant]
  5. ALL OTHER THERAPEUTIC PRODUCTS (ALL OTHER THERAPEUTIC PRODUCTS) [Concomitant]

REACTIONS (4)
  - CHEST DISCOMFORT [None]
  - HEART RATE IRREGULAR [None]
  - INFUSION RELATED REACTION [None]
  - SOMNOLENCE [None]
